FAERS Safety Report 4930357-4 (Version None)
Quarter: 2006Q1

REPORT INFORMATION
  Report Type: 
  Country: None (occurrence: None)
  Receive Date: 20060302
  Receipt Date: 20060116
  Transmission Date: 20060701
  Serious: Yes (Life-Threatening, Hospitalization, Other)
  Sender: FDA-Public Use
  Company Number: US-GLAXOSMITHKLINE-A0589447A

PATIENT
  Age: 46 Year
  Sex: Female
  Weight: 92.7 kg

DRUGS (5)
  1. REQUIP [Suspect]
     Indication: RESTLESS LEGS SYNDROME
     Dosage: .5MG PER DAY
     Route: 048
  2. MORPHINE [Suspect]
     Indication: DRUG USE FOR UNKNOWN INDICATION
     Route: 048
  3. CYMBALTA [Concomitant]
  4. BENICAR [Concomitant]
  5. UNKNOWN MEDICATION [Concomitant]

REACTIONS (5)
  - AMNESIA [None]
  - DISORIENTATION [None]
  - OVERDOSE [None]
  - RESPIRATORY ARREST [None]
  - SUICIDE ATTEMPT [None]
